FAERS Safety Report 19100443 (Version 2)
Quarter: 2021Q2

REPORT INFORMATION
  Report Type: Other
  Country: CN (occurrence: CN)
  Receive Date: 20210407
  Receipt Date: 20210415
  Transmission Date: 20210717
  Serious: Yes (Other)
  Sender: FDA-Public Use
  Company Number: CN-ROCHE-2803237

PATIENT
  Age: 84 Year
  Sex: Female
  Weight: 40 kg

DRUGS (1)
  1. ACTILYSE [Suspect]
     Active Substance: ALTEPLASE
     Indication: ISCHAEMIC STROKE
     Dosage: 36MG OF RT?PA (0.9MG/KG IN 1HOUR)
     Route: 042

REACTIONS (3)
  - Hypofibrinogenaemia [Recovered/Resolved]
  - Haematoma [Unknown]
  - Aortic aneurysm [Unknown]
